FAERS Safety Report 25454352 (Version 2)
Quarter: 2025Q2

REPORT INFORMATION
  Report Type: Report from Study
  Country: US (occurrence: US)
  Receive Date: 20250619
  Receipt Date: 20250623
  Transmission Date: 20250717
  Serious: Yes (Other)
  Sender: ACADIA PHARMACEUTICALS
  Company Number: US-ACADIA PHARMACEUTICALS INC.-ACA-2025-PIM-007167

PATIENT
  Sex: Male

DRUGS (1)
  1. NUPLAZID [Suspect]
     Active Substance: PIMAVANSERIN TARTRATE
     Indication: Parkinson^s disease psychosis
     Dosage: 34 MILLIGRAM, QD
     Route: 048
     Dates: start: 20250610, end: 20250613

REACTIONS (4)
  - Hallucination, visual [Not Recovered/Not Resolved]
  - Fatigue [Not Recovered/Not Resolved]
  - Visual impairment [Not Recovered/Not Resolved]
  - Adverse drug reaction [Not Recovered/Not Resolved]
